FAERS Safety Report 16023012 (Version 3)
Quarter: 2019Q3

REPORT INFORMATION
  Report Type: Spontaneous
  Country: GB (occurrence: GB)
  Receive Date: 20190301
  Receipt Date: 20190719
  Transmission Date: 20191004
  Serious: Yes (Hospitalization)
  Sender: FDA-Public Use
  Company Number: GB-BIOVITRUM-2019GB0383

PATIENT
  Sex: Male
  Weight: 1.57 kg

DRUGS (8)
  1. KINERET [Suspect]
     Active Substance: ANAKINRA
     Indication: HAEMOPHAGOCYTIC LYMPHOHISTIOCYTOSIS
     Route: 064
     Dates: start: 20180523, end: 20180801
  2. POLYANTIBIOTIC [Concomitant]
     Indication: SEPSIS
     Route: 064
     Dates: start: 20180412, end: 20180430
  3. ANTIFUNGALS [Concomitant]
     Active Substance: UNSPECIFIED INGREDIENT
     Route: 064
  4. METHYLPREDNISOLONE. [Concomitant]
     Active Substance: METHYLPREDNISOLONE
     Indication: HAEMOPHAGOCYTIC LYMPHOHISTIOCYTOSIS
     Route: 064
     Dates: start: 20180501, end: 20180515
  5. KINERET [Suspect]
     Active Substance: ANAKINRA
     Indication: HAEMOPHAGOCYTIC LYMPHOHISTIOCYTOSIS
     Route: 064
     Dates: start: 20180513, end: 20180522
  6. ANTIVIRAL NOS [Concomitant]
     Active Substance: UNSPECIFIED INGREDIENT
     Route: 064
  7. IMMUNGLOBULIN [Concomitant]
     Active Substance: HUMAN IMMUNOGLOBULIN G
     Indication: HAEMOPHAGOCYTIC LYMPHOHISTIOCYTOSIS
     Route: 064
     Dates: start: 20180501, end: 20180515
  8. DEXAMETHASONE. [Concomitant]
     Active Substance: DEXAMETHASONE
     Indication: HAEMOPHAGOCYTIC LYMPHOHISTIOCYTOSIS
     Dosage: 12 MG DECREASE GRADUAL
     Route: 064
     Dates: start: 20180430, end: 20180801

REACTIONS (4)
  - Hydrops foetalis [Unknown]
  - Small for dates baby [Unknown]
  - Foetal anaemia [Recovered/Resolved]
  - Foetal monitoring abnormal [Unknown]

NARRATIVE: CASE EVENT DATE: 20180618
